FAERS Safety Report 8117840-8 (Version None)
Quarter: 2012Q1

REPORT INFORMATION
  Report Type: 
  Country: None (occurrence: None)
  Receive Date: 20120131
  Receipt Date: 20120111
  Transmission Date: 20120608
  Serious: Yes (Life-Threatening)
  Sender: FDA-Public Use
  Company Number: JP-2012-10231

PATIENT
  Age: 85 Year
  Sex: Male
  Weight: 49 kg

DRUGS (14)
  1. LASIX [Suspect]
     Indication: CARDIAC FAILURE
     Dosage: 48 ML, DAILY DOSE, INTRAVENOUS
     Route: 042
     Dates: start: 20111229
  2. LOSARTAN POTASSIUM [Concomitant]
  3. LANSOPRAZOLE [Concomitant]
  4. LIVALO (PITAVASTATIN SODIUIM) [Concomitant]
  5. LASIX [Concomitant]
  6. ALLOPURINOL [Concomitant]
  7. SAMSCA [Suspect]
     Indication: CARDIAC FAILURE
     Dosage: 15 MG, QAM, ORAL
     Route: 048
     Dates: start: 20111228, end: 20120109
  8. SLOW-K [Concomitant]
  9. PLETAL [Concomitant]
  10. DOBUTREX [Concomitant]
  11. ASPIRIN [Concomitant]
  12. TICLOPIDINE HCL [Concomitant]
  13. PREDOPA (DOPAMINE HYDROCHLORIDE) [Concomitant]
  14. TEMELIN (TIZANIDINE HYDROCHLORIDE) [Concomitant]

REACTIONS (7)
  - HYPERKALAEMIA [None]
  - CONDITION AGGRAVATED [None]
  - ALTERED STATE OF CONSCIOUSNESS [None]
  - PNEUMONIA [None]
  - ANURIA [None]
  - CARDIAC FAILURE CONGESTIVE [None]
  - BLOOD POTASSIUM DECREASED [None]
